FAERS Safety Report 15297167 (Version 1)
Quarter: 2018Q3

REPORT INFORMATION
  Report Type: Spontaneous
  Country: AU (occurrence: AU)
  Receive Date: 20180820
  Receipt Date: 20180820
  Transmission Date: 20181010
  Serious: Yes (Other)
  Sender: FDA-Public Use
  Company Number: AU-ELI_LILLY_AND_COMPANY-AU201808005808

PATIENT
  Sex: Female

DRUGS (2)
  1. TALTZ [Suspect]
     Active Substance: IXEKIZUMAB
     Indication: PSORIASIS
     Dosage: UNK UNK, UNKNOWN
     Route: 065
  2. TALTZ [Suspect]
     Active Substance: IXEKIZUMAB
     Indication: ARTHROPATHY

REACTIONS (2)
  - Abscess [Unknown]
  - Sepsis [Unknown]
